FAERS Safety Report 4385578-9 (Version None)
Quarter: 2004Q2

REPORT INFORMATION
  Report Type: 
  Country: None (occurrence: None)
  Receive Date: 20040622
  Receipt Date: 20040609
  Transmission Date: 20050107
  Serious: Yes (Hospitalization)
  Sender: FDA-Public Use
  Company Number: 2004039150

PATIENT
  Age: 33 Year
  Sex: Female

DRUGS (2)
  1. VIAGRA [Suspect]
     Indication: PULMONARY HYPERTENSION
     Dosage: UNKNOWN, 50 MG; 2 MONTHS AGO
  2. DIGOXIN [Suspect]
     Indication: ILL-DEFINED DISORDER

REACTIONS (4)
  - ARRHYTHMIA [None]
  - NAUSEA [None]
  - THERAPEUTIC AGENT TOXICITY [None]
  - VOMITING [None]
